FAERS Safety Report 7137240-7 (Version None)
Quarter: 2010Q4

REPORT INFORMATION
  Report Type: 
  Country: None (occurrence: None)
  Receive Date: 20101119
  Receipt Date: 20100604
  Transmission Date: 20110411
  Serious: Yes (Death)
  Sender: FDA-Public Use
  Company Number: DSA_44261_2010

PATIENT
  Sex: Female

DRUGS (18)
  1. XENAZINE [Suspect]
     Indication: HUNTINGTON'S DISEASE
     Dosage: (25 MG BID ORAL), (12.5 MG TID ORAL)
     Route: 048
     Dates: start: 20090805, end: 20090924
  2. XENAZINE [Suspect]
     Indication: HUNTINGTON'S DISEASE
     Dosage: (25 MG BID ORAL), (12.5 MG TID ORAL)
     Route: 048
     Dates: start: 20091008
  3. NEXIUM [Concomitant]
  4. PLAQUENIL [Concomitant]
  5. LEVOCYL [Concomitant]
  6. ZOCOR [Concomitant]
  7. COREG [Concomitant]
  8. DEMADEX [Concomitant]
  9. PREDNISONE [Concomitant]
  10. AMBIEN [Concomitant]
  11. SPIRIVA [Concomitant]
  12. LANTUS [Concomitant]
  13. NOVOLOG [Concomitant]
  14. TYLENOL W/ CODEINE NO. 3 [Concomitant]
  15. PROZAC [Concomitant]
  16. LISINOPRIL [Concomitant]
  17. KLONOPIN [Concomitant]
  18. NEURONTIN [Concomitant]

REACTIONS (1)
  - DEATH [None]
